FAERS Safety Report 16215578 (Version 1)
Quarter: 2019Q2

REPORT INFORMATION
  Report Type: Spontaneous
  Country: FR (occurrence: FR)
  Receive Date: 20190419
  Receipt Date: 20190419
  Transmission Date: 20190711
  Serious: Yes (Hospitalization)
  Sender: FDA-Public Use
  Company Number: FR-SUN PHARMACEUTICAL INDUSTRIES LTD-2019RR-205629

PATIENT
  Age: 35 Year
  Sex: Male

DRUGS (5)
  1. PARKINANE L P 5 MG, GELULE A LIBERATION PROLONGEE [Suspect]
     Active Substance: TRIHEXYPHENIDYL HYDROCHLORIDE
     Indication: PRODUCT USED FOR UNKNOWN INDICATION
     Dosage: INTEGRALITE DU SEMAINIER ()
     Route: 048
     Dates: start: 20171114, end: 20171114
  2. TERALITHE [Suspect]
     Active Substance: LITHIUM CARBONATE
     Indication: PRODUCT USED FOR UNKNOWN INDICATION
     Dosage: INTEGRALITE DU SEMAINIER ()
     Route: 048
     Dates: start: 20171114, end: 20171114
  3. ALPRAZOLAM. [Suspect]
     Active Substance: ALPRAZOLAM
     Indication: PRODUCT USED FOR UNKNOWN INDICATION
     Dosage: 3 BOITES DE 30 CP DE 0.5MG ; IN TOTAL
     Route: 048
     Dates: start: 20171114, end: 20171114
  4. LOXAPAC 50 MG, COMPRIME PELLICULE [Suspect]
     Active Substance: LOXAPINE SUCCINATE
     Indication: PRODUCT USED FOR UNKNOWN INDICATION
     Dosage: 4 BOITES DE 30 CP DE 50 MG ; IN TOTAL
     Route: 048
     Dates: start: 20171114, end: 20171114
  5. OLANZAPINE. [Suspect]
     Active Substance: OLANZAPINE
     Indication: PRODUCT USED FOR UNKNOWN INDICATION
     Dosage: INTEGRALITE DU SEMAINIER (20 MG) (1)
     Route: 048
     Dates: start: 20171114, end: 20171114

REACTIONS (5)
  - Suicide attempt [Unknown]
  - Toxicity to various agents [Recovered/Resolved]
  - Somnolence [Recovered/Resolved]
  - Miosis [Recovered/Resolved]
  - Hypothermia [Recovered/Resolved]

NARRATIVE: CASE EVENT DATE: 20171114
